FAERS Safety Report 20524751 (Version 1)
Quarter: 2022Q1

REPORT INFORMATION
  Report Type: Spontaneous
  Country: CN (occurrence: CN)
  Receive Date: 20220228
  Receipt Date: 20220228
  Transmission Date: 20220423
  Serious: Yes (Other)
  Sender: FDA-Public Use
  Company Number: CN-BAXTER-2022BAX004032

PATIENT
  Age: 66 Year
  Sex: Female
  Weight: 44 kg

DRUGS (8)
  1. CYCLOPHOSPHAMIDE [Suspect]
     Active Substance: CYCLOPHOSPHAMIDE
     Indication: Diffuse large B-cell lymphoma
     Dosage: INTRAVENOUS DRIP OF CYCLOPHOSPHAMIDE FOR INJECTION 1G + 0.9% SODIUM CHLORIDE INJECTION 500ML
     Route: 041
     Dates: start: 20220122, end: 20220122
  2. SODIUM CHLORIDE [Suspect]
     Active Substance: SODIUM CHLORIDE
     Indication: Medication dilution
     Dosage: INTRAVENOUS DRIP OF RITUXIMAB INJECTION 400 MG + 0.9% SODIUM CHLORIDE INJECTION 500ML
     Route: 041
     Dates: start: 20220121, end: 20220121
  3. SODIUM CHLORIDE [Suspect]
     Active Substance: SODIUM CHLORIDE
     Dosage: INTRAVENOUS DRIP OF CYCLOPHOSPHAMIDE FOR INJECTION 1G + 0.9% SODIUM CHLORIDE INJECTION 500ML
     Route: 041
     Dates: start: 20220122, end: 20220122
  4. SODIUM CHLORIDE [Suspect]
     Active Substance: SODIUM CHLORIDE
     Dosage: INTRAVENOUS DRIP OF VINCRISTINE SULFATE FOR INJECTION 1.8 MG + 0.9% SODIUM CHLORIDE INJECTION 100ML
     Route: 041
     Dates: start: 20220122, end: 20220122
  5. DEXTROSE [Suspect]
     Active Substance: DEXTROSE
     Indication: Medication dilution
     Dosage: INTRAVENOUS DRIP OF PIRARUBICIN HYDROCHLORIDE FOR INJECTION 65 MG + 5% GLUCOSE INJECTION 250ML
     Route: 041
     Dates: start: 20220122, end: 20220122
  6. RITUXIMAB [Suspect]
     Active Substance: RITUXIMAB
     Indication: Diffuse large B-cell lymphoma
     Dosage: RITUXIMAB INJECTION 400 MG + 0.9% SODIUM CHLORIDE INJECTION 500ML.
     Route: 041
     Dates: start: 20220121, end: 20220121
  7. PIRARUBICIN HYDROCHLORIDE [Suspect]
     Active Substance: PIRARUBICIN HYDROCHLORIDE
     Indication: Diffuse large B-cell lymphoma
     Dosage: INTRAVENOUS DRIP OF PIRARUBICIN HYDROCHLORIDE FOR INJECTION 65 MG + 5% GLUCOSE INJECTION 250ML
     Route: 041
     Dates: start: 20220122, end: 20220122
  8. VINCRISTINE SULFATE [Suspect]
     Active Substance: VINCRISTINE SULFATE
     Indication: Diffuse large B-cell lymphoma
     Dosage: VINCRISTINE SULFATE FOR INJECTION 1.8 MG + 0.9% SODIUM CHLORIDE INJECTION 100ML.
     Route: 041
     Dates: start: 20220122, end: 20220122

REACTIONS (3)
  - White blood cell count decreased [Recovering/Resolving]
  - Neutropenia [Recovering/Resolving]
  - Myelosuppression [Unknown]

NARRATIVE: CASE EVENT DATE: 20220210
